FAERS Safety Report 10033995 (Version 1)
Quarter: 2014Q1

REPORT INFORMATION
  Report Type: Spontaneous
  Country: US (occurrence: None)
  Receive Date: 20140324
  Receipt Date: 20140324
  Transmission Date: 20141002
  Serious: Yes (Other)
  Sender: FDA-Public Use
  Company Number: None

PATIENT
  Age: 62 Year
  Sex: Female
  Weight: 81.65 kg

DRUGS (1)
  1. PREDNISONE [Suspect]
     Dates: start: 20140220, end: 20140221

REACTIONS (3)
  - Dyspnoea [None]
  - Swelling face [None]
  - Local swelling [None]
